FAERS Safety Report 9355348 (Version 3)
Quarter: 2013Q4

REPORT INFORMATION
  Report Type: Spontaneous
  Country: US (occurrence: US)
  Receive Date: 20130619
  Receipt Date: 20131004
  Transmission Date: 20140711
  Serious: Yes (Other)
  Sender: FDA-Public Use
  Company Number: US-BAYER-2013-075246

PATIENT
  Age: 20 Year
  Sex: Female
  Weight: 58.96 kg

DRUGS (10)
  1. YAZ [Suspect]
     Indication: CONTRACEPTION
     Dosage: UNK
     Dates: start: 2008, end: 201010
  2. YAZ [Suspect]
     Indication: PREMENSTRUAL DYSPHORIC DISORDER
     Dosage: UNK
     Dates: start: 2008, end: 2011
  3. YAZ [Suspect]
     Indication: PREMENSTRUAL SYNDROME
  4. YASMIN [Suspect]
  5. IMPLANON [Concomitant]
     Dosage: UNK
     Dates: start: 2011
  6. EFFEXOR [Concomitant]
     Indication: DEPRESSION
     Dosage: UNK
     Dates: start: 2008, end: 2011
  7. VENLAFAXINE HYDROCHLORIDE [Concomitant]
     Dosage: 37.5/75 MG
  8. AZITHROMYCIN [Concomitant]
     Dosage: 250 MG, UNK
  9. PREDNISONE [Concomitant]
     Dosage: 20 MG, UNK
  10. IOPHEN-C NR [Concomitant]

REACTIONS (11)
  - Deep vein thrombosis [None]
  - Injury [None]
  - Pain [None]
  - Emotional distress [None]
  - Fear of death [None]
  - Nervousness [None]
  - Depression [None]
  - Pain in extremity [None]
  - Weight bearing difficulty [None]
  - Abasia [None]
  - Impaired work ability [None]
